FAERS Safety Report 7656369-8 (Version None)
Quarter: 2011Q3

REPORT INFORMATION
  Report Type: 
  Country: None (occurrence: None)
  Receive Date: 20110804
  Receipt Date: 20110728
  Transmission Date: 20111222
  Serious: Yes (Death)
  Sender: FDA-Public Use
  Company Number: US-GLAXOSMITHKLINE-A0927549A

PATIENT
  Age: 73 Year
  Sex: Female

DRUGS (1)
  1. REQUIP [Suspect]
     Dosage: 1MG UNKNOWN
     Route: 065
     Dates: start: 20070510, end: 20110106

REACTIONS (1)
  - LUNG NEOPLASM MALIGNANT [None]
